FAERS Safety Report 6035131-6 (Version None)
Quarter: 2009Q1

REPORT INFORMATION
  Report Type: 
  Country: None (occurrence: None)
  Receive Date: 20090112
  Receipt Date: 20090105
  Transmission Date: 20090719
  Serious: No
  Sender: FDA-Public Use
  Company Number: US-B.I. PHARMACEUTICALS,INC./RIDGEFIELD-2009-BP-00123BP

PATIENT
  Age: 61 Year
  Sex: Female
  Weight: 54.4 kg

DRUGS (4)
  1. MOBIC [Suspect]
     Indication: BURSITIS
  2. DARVOCET [Concomitant]
     Dates: start: 20081201
  3. VOLTAREN GEL [Concomitant]
     Indication: BURSITIS
     Route: 061
  4. ALEVE [Concomitant]
     Indication: BURSITIS

REACTIONS (1)
  - DYSPEPSIA [None]
